APPROVED DRUG PRODUCT: ONDANSETRON
Active Ingredient: ONDANSETRON
Strength: 8MG
Dosage Form/Route: TABLET, ORALLY DISINTEGRATING;ORAL
Application: A078139 | Product #002
Applicant: PHARMOBEDIENT CONSULTING LLC
Approved: Jun 25, 2007 | RLD: No | RS: No | Type: DISCN